FAERS Safety Report 25672454 (Version 2)
Quarter: 2025Q4

REPORT INFORMATION
  Report Type: Spontaneous
  Country: US (occurrence: US)
  Receive Date: 20250812
  Receipt Date: 20251113
  Transmission Date: 20260117
  Serious: No
  Sender: SANOFI AVENTIS
  Company Number: US-SA-2025SA234377

PATIENT
  Age: 36 Year
  Sex: Female

DRUGS (4)
  1. DUPIXENT [Suspect]
     Active Substance: DUPILUMAB
     Indication: Dermatitis atopic
     Dosage: 600 MG, 1X
     Route: 058
     Dates: start: 20250320, end: 20250320
  2. DUPIXENT [Suspect]
     Active Substance: DUPILUMAB
     Dosage: 300 MG, QOW
     Route: 058
     Dates: start: 2025, end: 2025
  3. DUPIXENT [Suspect]
     Active Substance: DUPILUMAB
     Dosage: 600 MG, 1X
     Route: 058
     Dates: start: 20251023
  4. DUPIXENT [Suspect]
     Active Substance: DUPILUMAB
     Dosage: 300 MG, QOW
     Route: 058
     Dates: start: 2025

REACTIONS (12)
  - Furuncle [Unknown]
  - Skin fissures [Unknown]
  - Dry skin [Unknown]
  - Eczema [Unknown]
  - Rebound effect [Unknown]
  - Skin exfoliation [Unknown]
  - Pain [Unknown]
  - Skin induration [Unknown]
  - Sleep disorder due to a general medical condition [Unknown]
  - Swelling [Unknown]
  - Purulent discharge [Unknown]
  - Inflammation [Unknown]

NARRATIVE: CASE EVENT DATE: 20250101
